FAERS Safety Report 12125618 (Version 1)
Quarter: 2016Q1

REPORT INFORMATION
  Report Type: Spontaneous
  Country: US (occurrence: US)
  Receive Date: 20160229
  Receipt Date: 20160229
  Transmission Date: 20160526
  Serious: Yes (Hospitalization)
  Sender: FDA-Public Use
  Company Number: US-ABBVIE-15P-163-1482704-00

PATIENT
  Age: 70 Year
  Sex: Male

DRUGS (1)
  1. ANDROGEL [Suspect]
     Active Substance: TESTOSTERONE
     Indication: BLOOD TESTOSTERONE DECREASED
     Route: 061
     Dates: start: 201004, end: 201311

REACTIONS (6)
  - Myocardial infarction [Unknown]
  - Anhedonia [Unknown]
  - Fear [Unknown]
  - Emotional distress [Unknown]
  - Loss of employment [Unknown]
  - Economic problem [Unknown]

NARRATIVE: CASE EVENT DATE: 20131025
